FAERS Safety Report 9152305 (Version 2)
Quarter: 2013Q2

REPORT INFORMATION
  Report Type: Spontaneous
  Country: GB (occurrence: GB)
  Receive Date: 20130308
  Receipt Date: 20130625
  Transmission Date: 20140414
  Serious: Yes (Hospitalization, Other)
  Sender: FDA-Public Use
  Company Number: GB-PFIZER INC-2013077572

PATIENT
  Sex: Female

DRUGS (17)
  1. RAMIPRIL [Suspect]
     Dosage: UNKNOWN, DAILY
     Route: 065
     Dates: end: 20130108
  2. PHYSIONEAL GLUCOSE [Suspect]
     Indication: PERITONEAL DIALYSIS
     Dosage: UNK
     Route: 033
  3. EXTRANEAL [Suspect]
     Indication: PERITONEAL DIALYSIS
     Dosage: UNK
     Route: 033
  4. DOXYCIN [Suspect]
     Dosage: UNK, 1X/DAY
     Route: 065
     Dates: end: 20130108
  5. SALBUTAMOL [Concomitant]
     Indication: ASTHMA
     Dosage: 2 DF, UNK
     Route: 055
     Dates: start: 20130108, end: 20130118
  6. SERETIDE [Concomitant]
     Indication: ASTHMA
     Dosage: 250 MG, DAILY
     Route: 055
     Dates: start: 20130108, end: 20130118
  7. BISOPROLOL [Concomitant]
     Dosage: 10 MG, UNK
     Route: 048
     Dates: start: 20130108, end: 20130118
  8. CINACALCET [Concomitant]
     Dosage: 30 MG, ONCE EVERY TWO DAYS
     Route: 048
     Dates: start: 20130108, end: 20130118
  9. CLOPIDOGREL [Concomitant]
     Dosage: 75 MG, UNK
     Route: 065
     Dates: start: 20130108, end: 20130118
  10. ROSUVASTATIN [Concomitant]
     Dosage: 20 MG, UNK
     Route: 065
     Dates: start: 20130108, end: 20130118
  11. ALFACALCIDOL [Concomitant]
     Dosage: 0.5 MG, UNK
     Route: 065
     Dates: start: 20130108, end: 20130118
  12. SEVELAMER [Concomitant]
     Dosage: 800 MG, UNK
     Route: 065
     Dates: start: 20130108, end: 20130118
  13. EPREX [Concomitant]
     Dosage: 4000 ML, UNK
     Route: 065
     Dates: start: 20130108, end: 20130118
  14. LACTULOSE [Concomitant]
     Dosage: 10 MG, UNK
     Route: 065
     Dates: start: 20130108, end: 20130118
  15. HUMULIN [Concomitant]
     Dosage: 24 IU, UNK
     Dates: start: 20130108, end: 20130118
  16. HUMULIN S [Concomitant]
     Dosage: 100 UNIT CARTRIDGE/ 12 UNITS
     Route: 065
     Dates: start: 20130108, end: 20130118
  17. LEVOTHYROXINE [Concomitant]
     Dosage: 75 MG, UNK
     Route: 065
     Dates: start: 20130108, end: 20130118

REACTIONS (3)
  - Lower respiratory tract infection [Unknown]
  - Asthma [Unknown]
  - Blood pressure decreased [Recovered/Resolved]
